FAERS Safety Report 12569988 (Version 1)
Quarter: 2016Q3

REPORT INFORMATION
  Report Type: Spontaneous
  Country: US (occurrence: None)
  Receive Date: 20160718
  Receipt Date: 20160718
  Transmission Date: 20161109
  Serious: No
  Sender: FDA-Public Use
  Company Number: None

PATIENT
  Age: 50 Year
  Sex: Female
  Weight: 77.11 kg

DRUGS (13)
  1. TIZANIDINE. [Concomitant]
     Active Substance: TIZANIDINE
  2. DETROL [Concomitant]
     Active Substance: TOLTERODINE TARTRATE
  3. REQUIP/ROPINEROLE [Concomitant]
  4. CENTRUM MVIT [Concomitant]
  5. GILENYA [Suspect]
     Active Substance: FINGOLIMOD HYDROCHLORIDE
     Indication: MULTIPLE SCLEROSIS
     Dosage: 1 CAPSULE ONCE A DAY
     Route: 048
     Dates: start: 20121001
  6. MODAFINIL. [Concomitant]
     Active Substance: MODAFINIL
  7. AMPYRA [Concomitant]
     Active Substance: DALFAMPRIDINE
  8. VITAMIN D [Concomitant]
     Active Substance: CHOLECALCIFEROL
  9. LIORESAL/BACLOFEN [Concomitant]
  10. ASACOL/MESALAMINE [Concomitant]
  11. EFFEXOR/VENLAFAXINE [Concomitant]
  12. GILENYA/FINGOLIMOD [Concomitant]
  13. LANSOPRAZOLE. [Concomitant]
     Active Substance: LANSOPRAZOLE

REACTIONS (1)
  - Lymphocyte count decreased [None]

NARRATIVE: CASE EVENT DATE: 20160715
